FAERS Safety Report 7134421-3 (Version None)
Quarter: 2010Q4

REPORT INFORMATION
  Report Type: 
  Country: None (occurrence: None)
  Receive Date: 20101203
  Receipt Date: 20101129
  Transmission Date: 20110411
  Serious: Yes (Life-Threatening, Other)
  Sender: FDA-Public Use
  Company Number: PHHY2010US81224

PATIENT
  Sex: Female

DRUGS (7)
  1. RECLAST [Suspect]
  2. PREDNISONE [Suspect]
  3. PLAVIX [Concomitant]
  4. BENAZEPRIL [Concomitant]
  5. PRAVASTATIN [Concomitant]
  6. LEVOTHYROXINE SODIUM [Concomitant]
  7. CALCIUM [Concomitant]

REACTIONS (5)
  - ARTHRITIS [None]
  - ARTHROPATHY [None]
  - BLOOD PRESSURE INCREASED [None]
  - FEELING ABNORMAL [None]
  - LIMB DISCOMFORT [None]
